FAERS Safety Report 16379797 (Version 1)
Quarter: 2019Q2

REPORT INFORMATION
  Report Type: Spontaneous
  Country: US (occurrence: US)
  Receive Date: 20190531
  Receipt Date: 20190531
  Transmission Date: 20190711
  Serious: Yes (Hospitalization)
  Sender: FDA-Public Use
  Company Number: US-SERB S.A.S.-2067673

PATIENT
  Age: 40 Year
  Sex: Male

DRUGS (5)
  1. METHYLENE BLUE. [Suspect]
     Active Substance: METHYLENE BLUE
  2. PHENYLEPHRINE [Suspect]
     Active Substance: PHENYLEPHRINE\PHENYLEPHRINE HYDROCHLORIDE
     Route: 065
  3. CYANOKIT [Suspect]
     Active Substance: HYDROXOCOBALAMIN
     Indication: VASOPLEGIA SYNDROME
     Route: 065
  4. NOREPINEPHRINE. [Suspect]
     Active Substance: NOREPINEPHRINE
  5. VASOPRESSIN. [Suspect]
     Active Substance: VASOPRESSIN

REACTIONS (4)
  - Hyperkalaemia [Recovered/Resolved]
  - Acidosis [Recovered/Resolved]
  - Complication associated with device [Recovered/Resolved]
  - Product use in unapproved indication [Recovered/Resolved]
